FAERS Safety Report 5881786-6 (Version None)
Quarter: 2008Q3

REPORT INFORMATION
  Report Type: 
  Country: None (occurrence: None)
  Receive Date: 20080912
  Receipt Date: 20080714
  Transmission Date: 20090109
  Serious: No
  Sender: FDA-Public Use
  Company Number: US-ABBOTT-08P-163-0462657-00

PATIENT
  Sex: Male
  Weight: 108.96 kg

DRUGS (3)
  1. HUMIRA [Suspect]
     Indication: RHEUMATOID ARTHRITIS
     Route: 058
     Dates: start: 20080401
  2. FLUTICASONE PROPIONATE [Concomitant]
     Indication: HYPERSENSITIVITY
     Route: 045
  3. SERETIDE [Concomitant]
     Indication: ASTHMA
     Route: 055

REACTIONS (1)
  - ACCIDENTAL EXPOSURE [None]
